FAERS Safety Report 9184415 (Version 1)
Quarter: 2012Q4

REPORT INFORMATION
  Report Type: 
  Country: US (occurrence: US)
  Receive Date: 20121101
  Receipt Date: 20121101
  Transmission Date: 20130627
  Serious: Yes (Death)
  Sender: FDA-Public Use
  Company Number: CHPA2012US022642

PATIENT
  Age: 71 Year
  Sex: Male

DRUGS (1)
  1. MYOFLEX ANALGESIC CREME [Suspect]
     Indication: RADIATION ASSOCIATED PAIN
     Dosage: DIME-SIZE, QD
     Route: 061
     Dates: end: 20100808

REACTIONS (2)
  - Death [Fatal]
  - Incorrect drug administration duration [Unknown]
